FAERS Safety Report 15226738 (Version 2)
Quarter: 2018Q3

REPORT INFORMATION
  Report Type: Report from Study
  Country: US (occurrence: US)
  Receive Date: 20180801
  Receipt Date: 20180809
  Transmission Date: 20181010
  Serious: No
  Sender: FDA-Public Use
  Company Number: US-SA-2018SA207325

PATIENT
  Age: 58 Year
  Sex: Male

DRUGS (4)
  1. DUPILUMAB [Suspect]
     Active Substance: DUPILUMAB
     Indication: DERMATITIS ATOPIC
     Dosage: 600 MG, 1X
     Route: 058
     Dates: start: 201706, end: 201706
  2. ULTRAVATE [ULOBETASOL PROPIONATE] [Concomitant]
     Route: 061
  3. DUPILUMAB [Suspect]
     Active Substance: DUPILUMAB
     Indication: ECZEMA
     Dosage: 300 MG, QOW
     Route: 058
  4. CLOBETASOL [CLOBETASOL PROPIONATE] [Concomitant]
     Dosage: UNK
     Route: 061

REACTIONS (5)
  - Product use issue [Unknown]
  - Dermatitis atopic [Recovering/Resolving]
  - Ocular hyperaemia [Unknown]
  - Eye discharge [Unknown]
  - Injection site pain [Not Recovered/Not Resolved]

NARRATIVE: CASE EVENT DATE: 201806
